APPROVED DRUG PRODUCT: COSELA
Active Ingredient: TRILACICLIB DIHYDROCHLORIDE
Strength: EQ 300MG BASE/VIAL
Dosage Form/Route: POWDER;INTRAVENOUS
Application: N214200 | Product #001
Applicant: PHARMACOSMOS AS
Approved: Feb 12, 2021 | RLD: Yes | RS: Yes | Type: RX

PATENTS:
Patent 12527798 | Expires: Dec 5, 2037
Patent 9487530 | Expires: Mar 14, 2034
Patent 9487530 | Expires: Mar 14, 2034
Patent 10085992 | Expires: Mar 14, 2034
Patent 11529352 | Expires: Jul 23, 2039
Patent 11717523 | Expires: Mar 14, 2034
Patent 11717523 | Expires: Mar 14, 2034
Patent 10966984 | Expires: Mar 14, 2034
Patent 10966984 | Expires: Mar 14, 2034
Patent 11040042 | Expires: Oct 25, 2031
Patent 10189850 | Expires: Oct 25, 2031
Patent 10189849 | Expires: Oct 25, 2031
Patent 10927120 | Expires: Oct 25, 2031
Patent 8598186 | Expires: Dec 30, 2034
Patent 9957276 | Expires: Oct 25, 2031
Patent 8598197 | Expires: Oct 25, 2031
Patent 12168666 | Expires: Nov 13, 2040

EXCLUSIVITY:
Code: NCE | Date: Feb 12, 2026